FAERS Safety Report 21855330 (Version 1)
Quarter: 2023Q1

REPORT INFORMATION
  Report Type: Spontaneous
  Country: US (occurrence: US)
  Receive Date: 20230112
  Receipt Date: 20230112
  Transmission Date: 20230418
  Serious: Yes (Life-Threatening, Hospitalization, Other)
  Sender: FDA-Public Use
  Company Number: US-AMGEN-USASP2023000412

PATIENT
  Age: 80 Year
  Sex: Male

DRUGS (2)
  1. ENBREL [Suspect]
     Active Substance: ETANERCEPT
     Indication: Rheumatoid arthritis
     Dosage: 50 MILLIGRAM, QWK
     Route: 065
  2. ENBREL [Suspect]
     Active Substance: ETANERCEPT
     Dosage: 50 MILLIGRAM, QWK
     Route: 065
     Dates: start: 202212

REACTIONS (7)
  - Cervical vertebral fracture [Unknown]
  - Fall [Not Recovered/Not Resolved]
  - Drug dose omission by device [Unknown]
  - Lung disorder [Unknown]
  - Device difficult to use [Unknown]
  - Product communication issue [Unknown]
  - Device use error [Unknown]

NARRATIVE: CASE EVENT DATE: 20220101
